FAERS Safety Report 9474013 (Version 3)
Quarter: 2013Q3

REPORT INFORMATION
  Report Type: Spontaneous
  Country: JP (occurrence: JP)
  Receive Date: 20130823
  Receipt Date: 20130930
  Transmission Date: 20140515
  Serious: Yes (Death)
  Sender: FDA-Public Use
  Company Number: JP-BAYER-2013-090061

PATIENT
  Age: 59 Year
  Sex: Female
  Weight: 43 kg

DRUGS (10)
  1. STIVARGA [Suspect]
     Indication: COLON CANCER
     Dosage: 160 MG, QD
     Route: 048
     Dates: start: 20130612, end: 20130720
  2. UREPEARL [Concomitant]
     Indication: DRUG TOXICITY PROPHYLAXIS
     Dosage: UNK
     Route: 061
     Dates: end: 20130720
  3. LOXONIN [Concomitant]
  4. RINDERON [Concomitant]
     Dosage: UNK
  5. OXYCONTIN [Concomitant]
     Dosage: UNK
     Route: 048
  6. MAGLAX [Concomitant]
     Route: 048
  7. DIOVAN [Concomitant]
     Route: 048
  8. MUCOSTA [Concomitant]
  9. TAKEPRON [Concomitant]
  10. EBASTEL [Concomitant]
     Route: 048

REACTIONS (3)
  - Gastrointestinal perforation [Fatal]
  - Peritonitis [Fatal]
  - Glossitis [Unknown]
